FAERS Safety Report 18306299 (Version 2)
Quarter: 2020Q4

REPORT INFORMATION
  Report Type: Spontaneous
  Country: CO (occurrence: CO)
  Receive Date: 20200923
  Receipt Date: 20201209
  Transmission Date: 20210113
  Serious: Yes (Other)
  Sender: FDA-Public Use
  Company Number: CO-AMGEN-COLSP2020153421

PATIENT
  Age: 37 Year
  Sex: Male
  Weight: 60 kg

DRUGS (12)
  1. MVASI [Suspect]
     Active Substance: BEVACIZUMAB-AWWB
     Indication: GLIOBLASTOMA MULTIFORME
     Dosage: 600 MILLIGRAM, QD
     Route: 042
     Dates: start: 20200901
  2. PREGABALIN. [Concomitant]
     Active Substance: PREGABALIN
     Indication: PAIN
     Dosage: 50 MILLIGRAM, QHS (EVERY 12HOURS)
     Route: 048
     Dates: start: 20200519
  3. IRINOTECAN [Concomitant]
     Active Substance: IRINOTECAN
     Indication: GLIOBLASTOMA MULTIFORME
     Dosage: 272.16 MILLIGRAM, QD
     Route: 042
     Dates: start: 20200901
  4. ONDANSETRON [Concomitant]
     Active Substance: ONDANSETRON
     Indication: GLIOBLASTOMA MULTIFORME
     Dosage: 16 MILLIGRAM, QD
     Route: 042
     Dates: start: 20200901
  5. LOPERAMIDE HYDROCHLORIDE. [Concomitant]
     Active Substance: LOPERAMIDE HYDROCHLORIDE
     Dosage: 2 MILLIGRAM, Q6H
     Route: 048
     Dates: start: 20200902
  6. FOSAPREPITANT [Concomitant]
     Active Substance: FOSAPREPITANT
     Indication: GLIOBLASTOMA MULTIFORME
     Dosage: 150 MILLIGRAM, QD
     Route: 042
     Dates: start: 20200901
  7. ATROPINE SULFATE. [Concomitant]
     Active Substance: ATROPINE SULFATE
     Indication: GLIOBLASTOMA MULTIFORME
     Dosage: 1 MILLIGRAM PER MILLILITRE, QD
     Route: 030
     Dates: start: 20200901
  8. CALCIUM FOLINATE [Concomitant]
     Active Substance: LEUCOVORIN CALCIUM
     Indication: GLIOBLASTOMA MULTIFORME
     Dosage: 604.8 MILLIGRAM, QD
     Route: 042
     Dates: start: 20200901
  9. DEXAMETHASONE PHOSPHATE [Concomitant]
     Active Substance: DEXAMETHASONE PHOSPHATE
     Indication: GLIOBLASTOMA MULTIFORME
     Dosage: 16 MILLIGRAM, QD
     Route: 042
     Dates: start: 20200901
  10. FLUOROURACIL. [Concomitant]
     Active Substance: FLUOROURACIL
     Indication: GLIOBLASTOMA MULTIFORME
     Dosage: 604.8 MILLIGRAM, QD
     Route: 042
     Dates: start: 20200901
  11. ALUMINIUM ACETATE;HYDROCORTISONE ACETATE;LIDOCAINE;ZINC OXIDE [Concomitant]
     Dosage: UNK UNK, Q12H
     Route: 054
     Dates: start: 20200902
  12. ACETAMINOPHEN. [Concomitant]
     Active Substance: ACETAMINOPHEN
     Indication: PAIN
     Dosage: 500 MILLIGRAM, Q8H
     Route: 048
     Dates: start: 20200519

REACTIONS (3)
  - Dizziness [Not Recovered/Not Resolved]
  - Headache [Not Recovered/Not Resolved]
  - Decreased appetite [Not Recovered/Not Resolved]

NARRATIVE: CASE EVENT DATE: 20200917
